FAERS Safety Report 12699656 (Version 3)
Quarter: 2016Q4

REPORT INFORMATION
  Report Type: Report from Study
  Country: JP (occurrence: JP)
  Receive Date: 20160830
  Receipt Date: 20161004
  Transmission Date: 20170207
  Serious: Yes (Death, Other)
  Sender: FDA-Public Use
  Company Number: JP-009507513-1608JPN007392

PATIENT
  Age: 7 Month
  Sex: Female
  Weight: 4.11 kg

DRUGS (13)
  1. CANCIDAS [Suspect]
     Active Substance: CASPOFUNGIN ACETATE
     Indication: FEBRILE NEUTROPENIA
     Dosage: 4 MG, QD
     Route: 041
     Dates: start: 20160712, end: 20160716
  2. ALLOPURINOL. [Concomitant]
     Active Substance: ALLOPURINOL
     Dosage: 10 MG, QD, FORMULATION WAS POR, 0.45 MG, QD, FORMULATION WAS POR, DIVIDED DOSE FREQUENCY UNKNOWN
     Route: 048
     Dates: end: 20160716
  3. FUROSEMIDE. [Concomitant]
     Active Substance: FUROSEMIDE
     Dosage: 20 MG, QD, DIVIDED DOSE FREQUENCY UNKNOWN
     Route: 051
     Dates: start: 20160713, end: 20160713
  4. PIMOBENDAN [Concomitant]
     Active Substance: PIMOBENDAN
     Dosage: 0.45 MG, QD, FORMULATION POR, DIVIDED DOSE FREQUENCY UNKNOWN
     Route: 048
     Dates: end: 20160716
  5. TEICOPLANIN [Concomitant]
     Active Substance: TEICOPLANIN
     Dosage: 40 MG, QD, DIVIDED DOSE FREQUENCY UNKNOWN
     Route: 051
     Dates: start: 20160712, end: 20160712
  6. DIGOSIN [Concomitant]
     Active Substance: DIGOXIN
     Dosage: 0.02 MG, QD, FORMULATION WAS POR, 0.45 MG, QD, FORMULATION WAS POR, DIVIDED DOSE FREQUENCY UNKNOWN
     Route: 048
     Dates: end: 20160716
  7. SAMSCA [Concomitant]
     Active Substance: TOLVAPTAN
     Dosage: 5 MG, QD, FORMULATION WAS POR, 0.45 MG, QD, FORMULATION WAS POR, DIVIDED DOSE FREQUENCY UNKNOWN
     Route: 048
     Dates: end: 20160716
  8. FUROSEMIDE. [Concomitant]
     Active Substance: FUROSEMIDE
     Dosage: 18 MG, QD, FORMULATION WAS POR (DIVIDED DOSE FREQUENCY UNKNOWN)
     Route: 048
     Dates: end: 20160716
  9. MEXILETINE HYDROCHLORIDE. [Concomitant]
     Active Substance: MEXILETINE HYDROCHLORIDE
     Dosage: 40 MG, QD, FORMULATION WAS POR, 0.45 MG, QD, FORMULATION WAS POR, DIVIDED DOSE FREQUENCY UNKNOWN
     Route: 048
     Dates: end: 20160716
  10. MILRINONE [Concomitant]
     Active Substance: MILRINONE
     Dosage: 3.5 MG, QD (DIVIDED DOSE FREQUENCY UNKNOWN)
     Route: 051
     Dates: end: 20160717
  11. FLUITRAN [Concomitant]
     Active Substance: TRICHLORMETHIAZIDE
     Dosage: 2 MG, QD, FORMULATION POR (DIVIDED DOSE FREQUENCY UNKNOWN)
     Route: 048
     Dates: end: 20160716
  12. GASTER [Concomitant]
     Active Substance: FAMOTIDINE
     Dosage: 1 MG, QD, FORMULATION WAS POR, 0.45 MG, QD, FORMULATION WAS POR, DIVIDED DOSE FREQUENCY UNKNOWN
     Route: 048
     Dates: end: 20160716
  13. FRANDOL [Concomitant]
     Active Substance: ISOSORBIDE DINITRATE
     Dosage: 1 DF, QD, FORMULATION WAS TAP, 0.45 MG, QD, FORMULATION WAS POR, DIVIDED DOSE FREQUENCY UNKNOWN
     Route: 062
     Dates: end: 20160716

REACTIONS (3)
  - Cardiac failure [Fatal]
  - Prerenal failure [Fatal]
  - Respiratory failure [Fatal]

NARRATIVE: CASE EVENT DATE: 20160713
